FAERS Safety Report 24595462 (Version 1)
Quarter: 2024Q4

REPORT INFORMATION
  Report Type: Report from Study
  Country: CA (occurrence: CA)
  Receive Date: 20241109
  Receipt Date: 20241109
  Transmission Date: 20250115
  Serious: Yes (Other)
  Sender: JOHNSON AND JOHNSON
  Company Number: CA-JNJFOC-20210852743

PATIENT
  Sex: Female
  Weight: 56 kg

DRUGS (4)
  1. REMICADE [Suspect]
     Active Substance: INFLIXIMAB
     Indication: Crohn^s disease
     Route: 041
     Dates: start: 2017
  2. REMICADE [Suspect]
     Active Substance: INFLIXIMAB
     Route: 041
     Dates: start: 20110517
  3. REMICADE [Suspect]
     Active Substance: INFLIXIMAB
     Route: 041
  4. ENTYVIO [Concomitant]
     Active Substance: VEDOLIZUMAB
     Indication: Product used for unknown indication
     Route: 065
     Dates: start: 2017

REACTIONS (7)
  - Breast abscess [Unknown]
  - Skin infection [Not Recovered/Not Resolved]
  - Decreased appetite [Unknown]
  - Skin disorder [Unknown]
  - Off label use [Unknown]
  - Product use issue [Unknown]
  - Product dose omission issue [Unknown]

NARRATIVE: CASE EVENT DATE: 20170101
